FAERS Safety Report 22395201 (Version 1)
Quarter: 2023Q2

REPORT INFORMATION
  Report Type: Spontaneous
  Country: US (occurrence: US)
  Receive Date: 20230601
  Receipt Date: 20230601
  Transmission Date: 20230722
  Serious: No
  Sender: FDA-Public Use
  Company Number: US-PFIZER INC-202300207004

PATIENT
  Age: 81 Year
  Sex: Female

DRUGS (1)
  1. GLIPIZIDE XL [Suspect]
     Active Substance: GLIPIZIDE
     Indication: Diabetes mellitus
     Dosage: 2.5 MG, DAILY

REACTIONS (5)
  - Hypoglycaemia [Unknown]
  - Hyperhidrosis [Unknown]
  - Dizziness [Unknown]
  - Cardiac disorder [Unknown]
  - Blood glucose decreased [Unknown]
